FAERS Safety Report 9840934 (Version 1)
Quarter: 2014Q1

REPORT INFORMATION
  Report Type: Spontaneous
  Country: US (occurrence: None)
  Receive Date: 20140123
  Receipt Date: 20140123
  Transmission Date: 20141002
  Serious: Yes (Death)
  Sender: FDA-Public Use
  Company Number: None

PATIENT
  Sex: Male

DRUGS (1)
  1. PROCRIT [Suspect]
     Indication: DIABETES MELLITUS
     Dosage: Q WEEK FOR 90 DAYS SQ
     Route: 058
     Dates: start: 20130905, end: 20140120

REACTIONS (2)
  - Diabetes mellitus [None]
  - Adverse event [None]
